FAERS Safety Report 6788958-7 (Version None)
Quarter: 2010Q2

REPORT INFORMATION
  Report Type: 
  Country: None (occurrence: None)
  Receive Date: 20100623
  Receipt Date: 20100618
  Transmission Date: 20101027
  Serious: Yes (Other)
  Sender: FDA-Public Use
  Company Number: TW-ABBOTT-10P-153-0645559-00

PATIENT
  Sex: Female
  Weight: 56 kg

DRUGS (2)
  1. REDUCTIL 10MG [Suspect]
     Indication: DRUG USE FOR UNKNOWN INDICATION
     Route: 048
     Dates: start: 20100415, end: 20100512
  2. UNKNOWN MEDICATION [Concomitant]
     Indication: SINUS OPERATION

REACTIONS (1)
  - ABORTION INDUCED [None]
